FAERS Safety Report 24312265 (Version 2)
Quarter: 2024Q3

REPORT INFORMATION
  Report Type: Spontaneous
  Country: FR (occurrence: FR)
  Receive Date: 20240912
  Receipt Date: 20240917
  Transmission Date: 20241017
  Serious: Yes (Hospitalization, Other)
  Sender: NOVARTIS
  Company Number: FR-002147023-NVSC2024FR181370

PATIENT
  Age: 48 Year
  Sex: Female

DRUGS (3)
  1. KISQALI [Suspect]
     Active Substance: RIBOCICLIB
     Indication: Breast cancer metastatic
     Dosage: 600 MG, QD (SINCE 5 YEARS)
     Route: 048
     Dates: start: 2019
  2. DECAPEPTYL [Concomitant]
     Indication: Product used for unknown indication
     Dosage: UNK
     Route: 065
  3. LETROZOLE [Concomitant]
     Active Substance: LETROZOLE
     Indication: Breast cancer metastatic
     Dosage: 2.5 MG, QD
     Route: 048
     Dates: start: 2019

REACTIONS (4)
  - Arterial thrombosis [Recovered/Resolved]
  - Aortic thrombosis [Recovered/Resolved]
  - Ischaemic limb pain [Recovered/Resolved]
  - Heart rate irregular [Recovered/Resolved]

NARRATIVE: CASE EVENT DATE: 20240901
